FAERS Safety Report 5074058-3 (Version None)
Quarter: 2006Q3

REPORT INFORMATION
  Report Type: 
  Country: None (occurrence: None)
  Receive Date: 20060808
  Receipt Date: 20060728
  Transmission Date: 20061208
  Serious: Yes (Hospitalization)
  Sender: FDA-Public Use
  Company Number: AU-SANOFI-SYNTHELABO-F01200601759

PATIENT
  Sex: Male
  Weight: 69.4 kg

DRUGS (13)
  1. FLUOROURACIL [Suspect]
     Route: 042
     Dates: start: 20060605
  2. OXALIPLATIN [Suspect]
     Indication: OESOPHAGEAL CARCINOMA
     Route: 042
     Dates: start: 20060704, end: 20060704
  3. TEMAZEPAM [Concomitant]
     Indication: INSOMNIA
     Dosage: 10-20 MG
     Dates: start: 20060703, end: 20060703
  4. ACETAMINOPHEN [Concomitant]
     Dates: start: 20060703, end: 20060703
  5. PYRIDOXINE HCL [Concomitant]
     Dates: start: 20060704, end: 20060705
  6. TROPISETRON [Concomitant]
     Indication: NAUSEA
     Dates: start: 20060704, end: 20060705
  7. DEXAMETHASONE [Concomitant]
     Indication: NAUSEA
     Dates: start: 20060704, end: 20060704
  8. RABEPRAZOLE SODIUM [Concomitant]
     Indication: PROPHYLAXIS
     Dates: start: 20060703, end: 20060703
  9. CHLORPROMAZINE [Concomitant]
     Dates: start: 20060704, end: 20060704
  10. WARFARIN SODIUM [Concomitant]
     Indication: PROPHYLAXIS
     Dates: start: 20060703, end: 20060703
  11. PROGOUT [Concomitant]
     Indication: GOUT
     Dates: start: 20060703, end: 20060703
  12. ALLOPURINOL [Concomitant]
     Dates: start: 20060703, end: 20060703
  13. RADIOTHERAPY [Suspect]
     Indication: OESOPHAGEAL CARCINOMA
     Route: 050

REACTIONS (3)
  - CHEST PAIN [None]
  - CHOLECYSTITIS [None]
  - SUPRAVENTRICULAR TACHYCARDIA [None]
